FAERS Safety Report 11542671 (Version 1)
Quarter: 2015Q3

REPORT INFORMATION
  Report Type: Spontaneous
  Country: US (occurrence: US)
  Receive Date: 20150903
  Receipt Date: 20150903
  Transmission Date: 20151125
  Serious: No
  Sender: FDA-Public Use
  Company Number: US-ELI_LILLY_AND_COMPANY-US201205001695

PATIENT
  Age: 72 Year
  Sex: Male

DRUGS (20)
  1. CENTRUM SILVER [Concomitant]
     Active Substance: VITAMINS
     Dosage: UNK, EACH MORNING
  2. ENZYME [Concomitant]
     Indication: DYSPEPSIA
     Dosage: UNK, BID
  3. ESTER C                            /00968001/ [Concomitant]
     Dosage: 500 MG, EACH MORNING
  4. CHROMIUM PICOLINATE [Concomitant]
     Active Substance: CHROMIUM PICOLINATE
     Dosage: 200 MG, BID
  5. UBIQUINOL [Concomitant]
     Active Substance: UBIQUINOL
     Dosage: 100 MG, EACH MORNING
  6. CINNAMON. [Concomitant]
     Active Substance: CINNAMON
     Dosage: 1000 MG, BID
  7. ZOLPIDEM [Concomitant]
     Active Substance: ZOLPIDEM\ZOLPIDEM TARTRATE
     Indication: SLEEP DISORDER
     Dosage: 5 MG, EACH EVENING
  8. TRAMADOL. [Concomitant]
     Active Substance: TRAMADOL
     Indication: BACK PAIN
     Dosage: 25 MG, EACH EVENING
  9. LORATADINE. [Concomitant]
     Active Substance: LORATADINE
     Indication: HYPERSENSITIVITY
     Dosage: 10 MG, EACH EVENING
  10. VITAMINE D3 B.O.N. [Concomitant]
     Dosage: 2000 MG, EACH MORNING
  11. ACIDOPHILUS [Concomitant]
     Active Substance: LACTOBACILLUS ACIDOPHILUS
     Indication: DYSPEPSIA
     Dosage: UNK, BID
  12. HUMALOG [Suspect]
     Active Substance: INSULIN LISPRO
     Dosage: 5 U, OTHER
     Dates: start: 201112
  13. LISINOPRIL. [Concomitant]
     Active Substance: LISINOPRIL
     Dosage: 20 MG, BID
  14. HUMALOG [Suspect]
     Active Substance: INSULIN LISPRO
     Dosage: 19 U, EACH EVENING
     Dates: start: 201112
  15. LEVEMIR [Concomitant]
     Active Substance: INSULIN DETEMIR
     Dosage: 30 U, EACH EVENING
  16. FISH OIL [Concomitant]
     Active Substance: FISH OIL
     Dosage: UNK
  17. LACTASE [Concomitant]
     Active Substance: LACTASE
     Dosage: UNK, PRN
  18. HUMALOG [Suspect]
     Active Substance: INSULIN LISPRO
     Indication: TYPE 2 DIABETES MELLITUS
     Dosage: 11 U, EACH MORNING
     Dates: start: 201111
  19. SIMVASTATIN. [Concomitant]
     Active Substance: SIMVASTATIN
     Dosage: 20 MG, EACH EVENING
  20. CALCIUM MAGNESIUM ZINC [Concomitant]
     Active Substance: CALCIUM\MAGNESIUM\ZINC
     Dosage: UNK, EACH MORNING

REACTIONS (4)
  - Expired product administered [Unknown]
  - Emotional distress [Unknown]
  - Blood glucose increased [Unknown]
  - Fear [Unknown]

NARRATIVE: CASE EVENT DATE: 201204
